FAERS Safety Report 4449048-1 (Version None)
Quarter: 2004Q3

REPORT INFORMATION
  Report Type: 
  Country: None (occurrence: None)
  Receive Date: 20040910
  Receipt Date: 20040903
  Transmission Date: 20050211
  Serious: Yes (Life-Threatening, Hospitalization, Disabling)
  Sender: FDA-Public Use
  Company Number: 2004PK00835

PATIENT
  Age: 64 Year
  Sex: Female
  Weight: 61 kg

DRUGS (6)
  1. FASLODEX [Suspect]
     Indication: BREAST CANCER
     Dosage: 250 MG Q4WK IM
     Route: 030
     Dates: start: 20030320, end: 20030714
  2. MORPHINE SULFATE [Concomitant]
  3. SPASMOWERN [Concomitant]
  4. PANTOPRAZOLE SODIUM [Concomitant]
  5. ZOMETA [Concomitant]
  6. OVESTIN [Concomitant]

REACTIONS (4)
  - CEREBRAL VENOUS THROMBOSIS [None]
  - DIZZINESS [None]
  - MALIGNANT NEOPLASM PROGRESSION [None]
  - NEUROLOGICAL SYMPTOM [None]
